FAERS Safety Report 5799198-2 (Version None)
Quarter: 2008Q3

REPORT INFORMATION
  Report Type: 
  Country: None (occurrence: None)
  Receive Date: 20080702
  Receipt Date: 20080624
  Transmission Date: 20090109
  Serious: Yes (Hospitalization)
  Sender: FDA-Public Use
  Company Number: FR-PFIZER INC-2008044488

PATIENT
  Age: 78 Year
  Sex: Female

DRUGS (11)
  1. LYRICA [Suspect]
     Indication: PARAESTHESIA
     Route: 048
     Dates: start: 20080326, end: 20080409
  2. AUGMENTIN '125' [Suspect]
     Indication: URINARY TRACT INFECTION
     Route: 048
     Dates: start: 20080404, end: 20080405
  3. NORFLOXACIN [Suspect]
     Indication: URINARY TRACT INFECTION
     Route: 048
     Dates: start: 20080331, end: 20080409
  4. ACETAMINOPHEN [Concomitant]
     Indication: PYREXIA
     Route: 042
     Dates: start: 20080404, end: 20080407
  5. POTASSIUM CHLORIDE [Concomitant]
  6. CLONAZEPAM [Concomitant]
     Indication: PARAESTHESIA
     Route: 048
  7. PREDNISONE 50MG TAB [Concomitant]
     Indication: SJOGREN'S SYNDROME
  8. FOLIC ACID [Concomitant]
  9. RAMIPRIL [Concomitant]
     Indication: HYPERTENSION
  10. ACETYLSALICYLATE LYSINE [Concomitant]
  11. REPAGLINIDE [Concomitant]
     Indication: DIABETES MELLITUS MALNUTRITION-RELATED
     Route: 048

REACTIONS (2)
  - ERYTHEMA [None]
  - RASH MORBILLIFORM [None]
